FAERS Safety Report 20471508 (Version 1)
Quarter: 2022Q1

REPORT INFORMATION
  Report Type: Spontaneous
  Country: US (occurrence: US)
  Receive Date: 20220214
  Receipt Date: 20220214
  Transmission Date: 20220423
  Serious: No
  Sender: FDA-Public Use
  Company Number: US-PFIZER INC-202200222853

PATIENT
  Age: 68 Year
  Sex: Female

DRUGS (1)
  1. XELJANZ XR [Suspect]
     Active Substance: TOFACITINIB CITRATE
     Indication: Rheumatoid arthritis
     Dosage: 11 MG, 1X/DAY
     Route: 048
     Dates: start: 20211227

REACTIONS (6)
  - Tremor [Unknown]
  - Illness [Not Recovered/Not Resolved]
  - Movement disorder [Unknown]
  - Discouragement [Unknown]
  - Nasopharyngitis [Not Recovered/Not Resolved]
  - Product dose omission in error [Unknown]
